FAERS Safety Report 4599369-7 (Version None)
Quarter: 2005Q1

REPORT INFORMATION
  Report Type: 
  Country: None (occurrence: None)
  Receive Date: 20050303
  Receipt Date: 20050217
  Transmission Date: 20050727
  Serious: Yes (Death)
  Sender: FDA-Public Use
  Company Number: 2005S1000153

PATIENT
  Age: 75 Year
  Sex: Male

DRUGS (19)
  1. CLOZAPINE [Suspect]
     Indication: DEMENTIA OF THE ALZHEIMER'S TYPE, WITH DELUSIONS
     Dosage: 25MG, BID, ORAL
     Route: 048
     Dates: start: 20040929
  2. CLOZAPINE [Suspect]
     Indication: DEMENTIA OF THE ALZHEIMER'S TYPE, WITH DEPRESSED MOOD
     Dosage: 25MG, BID, ORAL
     Route: 048
     Dates: start: 20040929
  3. CLOZAPINE [Suspect]
     Indication: SENILE DEMENTIA
     Dosage: 25MG, BID, ORAL
     Route: 048
     Dates: start: 20040929
  4. CLOZAPINE [Suspect]
     Indication: DEMENTIA OF THE ALZHEIMER'S TYPE, WITH DELUSIONS
     Dosage: 100MG BID, ORAL
     Route: 048
     Dates: start: 20040929
  5. CLOZAPINE [Suspect]
     Indication: DEMENTIA OF THE ALZHEIMER'S TYPE, WITH DEPRESSED MOOD
     Dosage: 100MG BID, ORAL
     Route: 048
     Dates: start: 20040929
  6. CLOZAPINE [Suspect]
     Indication: SENILE DEMENTIA
     Dosage: 100MG BID, ORAL
     Route: 048
     Dates: start: 20040929
  7. MORPHINE SUL INJ [Concomitant]
  8. FENTANYL TRANSDERMAL SYSTEM [Concomitant]
  9. CEFTRIAXONE SODIUM [Concomitant]
  10. METFORMIN HCL EXTENDED RELEASE [Concomitant]
  11. REPAGLINIDE [Concomitant]
  12. METOPROLOL [Concomitant]
  13. GLIPIZIDE ER [Concomitant]
  14. IMIPRAMINE [Concomitant]
  15. CARBIDOPA AND LEVODOPA [Concomitant]
  16. RIVASTIGMINE TARTRATE [Concomitant]
  17. ACETAMINOPHEN [Concomitant]
  18. MAGNESIUM SULFATE [Concomitant]
  19. LACTULOSE [Concomitant]

REACTIONS (1)
  - NEOPLASM MALIGNANT [None]
